FAERS Safety Report 13009830 (Version 2)
Quarter: 2017Q2

REPORT INFORMATION
  Report Type: Spontaneous
  Country: ID (occurrence: ID)
  Receive Date: 20161208
  Receipt Date: 20170421
  Transmission Date: 20170830
  Serious: Yes (Death)
  Sender: FDA-Public Use
  Company Number: ID-TAKEDA-2016MPI010464

PATIENT
  Age: 56 Year
  Sex: Male

DRUGS (1)
  1. VELCADE [Suspect]
     Active Substance: BORTEZOMIB
     Indication: PLASMA CELL MYELOMA
     Dosage: 1.8 MG, UNK
     Route: 065
     Dates: start: 20151112, end: 20160408

REACTIONS (1)
  - Thrombocytopenia [Fatal]
